FAERS Safety Report 4464956-3 (Version None)
Quarter: 2004Q4

REPORT INFORMATION
  Report Type: 
  Country: None (occurrence: None)
  Receive Date: 20041004
  Receipt Date: 20040409
  Transmission Date: 20050328
  Serious: No
  Sender: FDA-Public Use
  Company Number: 368228

PATIENT
  Age: 82 Year
  Sex: Female

DRUGS (2)
  1. CARVEDILOL [Suspect]
     Dosage: 3.125MG TWICE PER DAY
     Route: 048
  2. LASIX [Concomitant]

REACTIONS (2)
  - EYE DISCHARGE [None]
  - EYE INFLAMMATION [None]
